FAERS Safety Report 8059367-8 (Version None)
Quarter: 2012Q1

REPORT INFORMATION
  Report Type: 
  Country: None (occurrence: None)
  Receive Date: 20120120
  Receipt Date: 20120120
  Transmission Date: 20120608
  Serious: Yes (Hospitalization)
  Sender: FDA-Public Use
  Company Number: None

PATIENT
  Age: 51 Year
  Sex: Female
  Weight: 63.502 kg

DRUGS (1)
  1. CELEBREX [Suspect]
     Indication: BACK PAIN
     Dosage: 200 MG
     Route: 048
     Dates: start: 20030101, end: 20060101

REACTIONS (4)
  - ASTHENIA [None]
  - HAEMORRHAGE [None]
  - HAEMOGLOBIN DECREASED [None]
  - FAECES DISCOLOURED [None]
